FAERS Safety Report 7626758-6 (Version None)
Quarter: 2011Q3

REPORT INFORMATION
  Report Type: 
  Country: None (occurrence: None)
  Receive Date: 20110721
  Receipt Date: 20110708
  Transmission Date: 20111222
  Serious: Yes (Hospitalization, Other)
  Sender: FDA-Public Use
  Company Number: CA-ELI_LILLY_AND_COMPANY-CA201107002292

PATIENT
  Sex: Female

DRUGS (6)
  1. ZYPREXA ZYDIS [Suspect]
     Indication: SCHIZOAFFECTIVE DISORDER
     Dosage: 10 MG, EACH EVENING
  2. ZYPREXA [Suspect]
     Dosage: 2.5 MG, EACH EVENING
  3. ZYPREXA [Suspect]
     Indication: SCHIZOAFFECTIVE DISORDER
     Dosage: 5 MG, EACH EVENING
     Dates: start: 20020514, end: 20041014
  4. ATIVAN [Concomitant]
  5. WELLBUTRIN [Concomitant]
  6. RISPERIDONE [Concomitant]

REACTIONS (17)
  - OSTEOARTHRITIS [None]
  - UTERINE LEIOMYOMA [None]
  - CHEST PAIN [None]
  - THROMBOSIS [None]
  - TYPE 2 DIABETES MELLITUS [None]
  - DIVERTICULUM [None]
  - POLYP [None]
  - HYPONATRAEMIA [None]
  - HYPERTRIGLYCERIDAEMIA [None]
  - CATARACT [None]
  - NEUTROPHILIA [None]
  - RECTAL HAEMORRHAGE [None]
  - CONJUNCTIVAL HAEMORRHAGE [None]
  - CORONARY ARTERY DISEASE [None]
  - TRANSIENT ISCHAEMIC ATTACK [None]
  - HYPERTENSION [None]
  - HYPERCHOLESTEROLAEMIA [None]
